FAERS Safety Report 12188360 (Version 1)
Quarter: 2016Q1

REPORT INFORMATION
  Report Type: Spontaneous
  Country: US (occurrence: US)
  Receive Date: 20160317
  Receipt Date: 20160317
  Transmission Date: 20160526
  Serious: No
  Sender: FDA-Public Use
  Company Number: US-GALDERMA-US15000385

PATIENT
  Sex: Female

DRUGS (8)
  1. TRI-LUMA [Suspect]
     Active Substance: FLUOCINOLONE ACETONIDE\HYDROQUINONE\TRETINOIN
     Indication: PIGMENTATION DISORDER
     Route: 061
     Dates: start: 2014, end: 201502
  2. PACIFICA NATURAL SKIN CARE [Concomitant]
     Indication: THERAPEUTIC SKIN CARE TOPICAL
     Route: 061
  3. COCONUT OIL [Concomitant]
     Active Substance: COCONUT OIL
     Indication: DRY SKIN PROPHYLAXIS
     Route: 061
  4. TRI-LUMA [Suspect]
     Active Substance: FLUOCINOLONE ACETONIDE\HYDROQUINONE\TRETINOIN
     Route: 061
     Dates: start: 2005
  5. RIMMEL LIQUID FOUNDATION [Concomitant]
     Route: 061
  6. NEUTROGENA FACIAL WASH [Concomitant]
     Route: 061
  7. L^OREAL BB CREAM [Concomitant]
     Route: 061
  8. AVEENO SPF 70 SUNSCREEN [Concomitant]
     Indication: PROPHYLAXIS AGAINST SOLAR RADIATION
     Route: 061

REACTIONS (5)
  - Erythema [Recovered/Resolved]
  - Skin exfoliation [Recovered/Resolved]
  - Product odour abnormal [Not Recovered/Not Resolved]
  - Condition aggravated [Recovered/Resolved]
  - Chemical injury [Recovered/Resolved]

NARRATIVE: CASE EVENT DATE: 2014
